FAERS Safety Report 15790717 (Version 4)
Quarter: 2019Q4

REPORT INFORMATION
  Report Type: Report from Study
  Country: JP (occurrence: JP)
  Receive Date: 20190104
  Receipt Date: 20191010
  Transmission Date: 20200122
  Serious: Yes (Other)
  Sender: FDA-Public Use
  Company Number: JP-JNJFOC-20181237004

PATIENT
  Age: 44 Year
  Sex: Female
  Weight: 64 kg

DRUGS (63)
  1. REMICADE [Suspect]
     Active Substance: INFLIXIMAB
     Route: 042
     Dates: start: 20170323, end: 20170323
  2. REMICADE [Suspect]
     Active Substance: INFLIXIMAB
     Route: 042
     Dates: start: 20171003, end: 20171003
  3. PREDNISOLONE. [Suspect]
     Active Substance: PREDNISOLONE
     Route: 048
     Dates: start: 20170615, end: 20170807
  4. TIZANIDINE. [Suspect]
     Active Substance: TIZANIDINE
     Indication: CERVICOBRACHIAL SYNDROME
     Route: 048
     Dates: start: 20170515, end: 20170910
  5. EURAX [Concomitant]
     Active Substance: CROTAMITON
     Indication: BEHCET^S SYNDROME
     Route: 061
  6. DIPHENHYDRAMINE HYDROCHLORIDE. [Concomitant]
     Active Substance: DIPHENHYDRAMINE HYDROCHLORIDE
     Indication: PROPHYLAXIS
     Route: 048
     Dates: start: 20170202
  7. CALONAL [Concomitant]
     Active Substance: ACETAMINOPHEN
     Indication: PROPHYLAXIS
     Route: 048
     Dates: start: 20170202, end: 20170502
  8. HYDROCORTONE [Concomitant]
     Active Substance: HYDROCORTISONE
     Route: 042
     Dates: start: 20181001, end: 20181001
  9. HYDROCORTONE [Concomitant]
     Active Substance: HYDROCORTISONE
     Route: 042
     Dates: start: 20181119, end: 20181119
  10. HYDROCORTONE [Concomitant]
     Active Substance: HYDROCORTISONE
     Route: 042
     Dates: start: 20190118, end: 20190118
  11. RESTAMIN                           /00000402/ [Concomitant]
     Active Substance: DIPHENHYDRAMINE HYDROCHLORIDE
     Indication: PROPHYLAXIS
     Dosage: PRN
     Route: 048
     Dates: start: 20170202, end: 20170502
  12. PREDNISOLONE. [Suspect]
     Active Substance: PREDNISOLONE
     Indication: BEHCET^S SYNDROME
     Route: 048
     Dates: end: 20170209
  13. PREDNISOLONE. [Suspect]
     Active Substance: PREDNISOLONE
     Route: 048
     Dates: start: 20170213, end: 20170216
  14. DAIPHEN [Suspect]
     Active Substance: SULFAMETHOXAZOLE\TRIMETHOPRIM
     Route: 048
     Dates: start: 20180501
  15. BUSCOPAN [Concomitant]
     Active Substance: BUTYLSCOPOLAMINE BROMIDE
     Indication: BEHCET^S SYNDROME
     Route: 042
     Dates: start: 20170502, end: 20170607
  16. LOPERAMIDE [Concomitant]
     Active Substance: LOPERAMIDE
     Indication: BEHCET^S SYNDROME
     Route: 048
     Dates: start: 20170517, end: 20170517
  17. COLCHICINE. [Concomitant]
     Active Substance: COLCHICINE
     Indication: BEHCET^S SYNDROME
     Route: 048
  18. TRAMCET [Concomitant]
     Active Substance: ACETAMINOPHEN\TRAMADOL
     Indication: BEHCET^S SYNDROME
     Route: 048
  19. NORSPAN [Concomitant]
     Active Substance: BUPRENORPHINE
     Indication: BEHCET^S SYNDROME
     Route: 061
     Dates: start: 20170502
  20. REMICADE [Suspect]
     Active Substance: INFLIXIMAB
     Indication: BEHCET^S SYNDROME
     Route: 042
     Dates: start: 20170202, end: 20170202
  21. REMICADE [Suspect]
     Active Substance: INFLIXIMAB
     Route: 042
     Dates: start: 20170216, end: 20170216
  22. PREDNISOLONE. [Suspect]
     Active Substance: PREDNISOLONE
     Route: 048
     Dates: start: 20170217, end: 20170322
  23. PREDNISOLONE. [Suspect]
     Active Substance: PREDNISOLONE
     Route: 048
     Dates: start: 20170512, end: 20170526
  24. DAIPHEN [Suspect]
     Active Substance: SULFAMETHOXAZOLE\TRIMETHOPRIM
     Indication: PROPHYLAXIS
     Route: 048
     Dates: end: 20180430
  25. DOMPERIDONE [Concomitant]
     Active Substance: DOMPERIDONE
     Indication: BEHCET^S SYNDROME
     Route: 048
     Dates: start: 20170511, end: 20170608
  26. REMICADE [Suspect]
     Active Substance: INFLIXIMAB
     Route: 042
     Dates: start: 20170502, end: 20170502
  27. PREDNISOLONE. [Suspect]
     Active Substance: PREDNISOLONE
     Route: 048
     Dates: start: 20170323, end: 20170511
  28. NEXIUM [Concomitant]
     Active Substance: ESOMEPRAZOLE MAGNESIUM
     Indication: PROPHYLAXIS
     Route: 048
     Dates: start: 20170208
  29. PENTAZOCINE LACTATE [Concomitant]
     Active Substance: PENTAZOCINE LACTATE
     Indication: BEHCET^S SYNDROME
     Route: 042
     Dates: start: 20170518, end: 20170607
  30. LOXOPROFEN [Concomitant]
     Active Substance: LOXOPROFEN
     Indication: BEHCET^S SYNDROME
     Route: 048
     Dates: start: 20170808
  31. NORSPAN [Concomitant]
     Active Substance: BUPRENORPHINE
     Route: 061
  32. ANTEBATE [Concomitant]
     Active Substance: BETAMETHASONE DIPROPIONATE
     Indication: BEHCET^S SYNDROME
     Route: 061
  33. HYDROCORTONE [Concomitant]
     Active Substance: HYDROCORTISONE
     Indication: PREMEDICATION
     Route: 042
     Dates: start: 20180501, end: 20180501
  34. HYDROCORTONE [Concomitant]
     Active Substance: HYDROCORTISONE
     Route: 042
     Dates: start: 20180813, end: 20180813
  35. TIZANIDINE. [Suspect]
     Active Substance: TIZANIDINE
     Route: 048
     Dates: start: 20170911, end: 20180527
  36. ISONIAZID. [Concomitant]
     Active Substance: ISONIAZID
     Indication: ANTIBIOTIC PROPHYLAXIS
     Route: 065
     Dates: start: 20170127, end: 20170807
  37. TAMIFLU [Concomitant]
     Active Substance: OSELTAMIVIR PHOSPHATE
     Indication: PROPHYLAXIS
     Route: 048
     Dates: start: 20170204, end: 20170208
  38. THIAMINE DISULFIDE W/VITAMIN B6/VITAMIN B12 N [Concomitant]
     Indication: BEHCET^S SYNDROME
     Route: 042
     Dates: start: 20170502, end: 20170607
  39. LOPERAMIDE [Concomitant]
     Active Substance: LOPERAMIDE
     Route: 048
     Dates: start: 20171003
  40. MESALAZINE [Concomitant]
     Active Substance: MESALAMINE
     Indication: BEHCET^S SYNDROME
     Route: 048
  41. PYDOXAL [Concomitant]
     Active Substance: PYRIDOXAL
     Indication: PROPHYLAXIS
     Route: 048
     Dates: start: 20170808
  42. HYDROCORTONE [Concomitant]
     Active Substance: HYDROCORTISONE
     Indication: BEHCET^S SYNDROME
     Route: 042
     Dates: start: 20180619, end: 20180619
  43. REMICADE [Suspect]
     Active Substance: INFLIXIMAB
     Route: 042
     Dates: start: 20170615, end: 20170615
  44. REMICADE [Suspect]
     Active Substance: INFLIXIMAB
     Route: 042
     Dates: start: 20170808, end: 20170808
  45. REMICADE [Suspect]
     Active Substance: INFLIXIMAB
     Route: 042
     Dates: start: 20180501, end: 20180501
  46. PREDNISOLONE. [Suspect]
     Active Substance: PREDNISOLONE
     Route: 048
     Dates: start: 20170210, end: 20170212
  47. ACELIO [Concomitant]
     Active Substance: ACETAMINOPHEN
     Indication: BEHCET^S SYNDROME
     Route: 042
     Dates: start: 20170501, end: 20170607
  48. XYLOCAINE [Concomitant]
     Active Substance: LIDOCAINE HYDROCHLORIDE
     Indication: BEHCET^S SYNDROME
     Route: 061
     Dates: start: 20170515, end: 20170515
  49. LAC-B [Concomitant]
     Active Substance: BIFIDOBACTERIUM SPP.
     Indication: BEHCET^S SYNDROME
     Route: 048
  50. REMICADE [Suspect]
     Active Substance: INFLIXIMAB
     Route: 042
     Dates: start: 20180313, end: 20180313
  51. REMICADE [Suspect]
     Active Substance: INFLIXIMAB
     Route: 042
     Dates: start: 20180619, end: 20180619
  52. PREDNISOLONE. [Suspect]
     Active Substance: PREDNISOLONE
     Route: 048
     Dates: start: 20170527, end: 20170614
  53. POTACOL R [Concomitant]
     Active Substance: CALCIUM CHLORIDE\MALTOSE\POTASSIUM CHLORIDE\SODIUM CHLORIDE\SODIUM LACTATE
     Indication: BEHCET^S SYNDROME
     Route: 042
     Dates: start: 20170502, end: 20170607
  54. MAGCOROL P [Concomitant]
     Active Substance: MAGNESIUM CITRATE
     Indication: ENDOSCOPY
     Route: 048
     Dates: start: 20170507, end: 20170507
  55. ORTEXER [Concomitant]
     Indication: BEHCET^S SYNDROME
     Route: 051
     Dates: start: 20170516, end: 20170516
  56. CELECOX [Concomitant]
     Active Substance: CELECOXIB
     Indication: BEHCET^S SYNDROME
     Route: 048
     Dates: start: 20170808
  57. REMICADE [Suspect]
     Active Substance: INFLIXIMAB
     Route: 042
     Dates: start: 20171128, end: 20180123
  58. PREDNISOLONE. [Suspect]
     Active Substance: PREDNISOLONE
     Route: 048
     Dates: start: 20170808
  59. SENNOSIDE [Concomitant]
     Active Substance: SENNOSIDES
     Indication: ENDOSCOPY
     Route: 048
     Dates: start: 20170507, end: 20170507
  60. DOMPERIDONE [Concomitant]
     Active Substance: DOMPERIDONE
     Route: 048
     Dates: start: 20170609
  61. AZUNOL [Concomitant]
     Indication: BEHCET^S SYNDROME
     Route: 049
     Dates: start: 20170514, end: 20170514
  62. AZUNOL [Concomitant]
     Route: 061
     Dates: start: 20171005
  63. VOLTAREN [Concomitant]
     Active Substance: DICLOFENAC SODIUM
     Indication: BEHCET^S SYNDROME
     Route: 051
     Dates: start: 20170815, end: 20170815

REACTIONS (13)
  - Haemorrhoids [Not Recovered/Not Resolved]
  - Hepatic function abnormal [Recovering/Resolving]
  - Pyoderma [Recovering/Resolving]
  - Infusion related reaction [Recovering/Resolving]
  - Asteatosis [Recovered/Resolved]
  - Neurogenic bladder [Not Recovered/Not Resolved]
  - Cervicobrachial syndrome [Not Recovered/Not Resolved]
  - Enterocolitis [Recovering/Resolving]
  - Oesophageal candidiasis [Recovering/Resolving]
  - Constipation [Recovered/Resolved]
  - Herpes simplex [Recovered/Resolved]
  - Neuropathy peripheral [Not Recovered/Not Resolved]
  - Acne [Recovered/Resolved]

NARRATIVE: CASE EVENT DATE: 20170203
